FAERS Safety Report 5729395-3 (Version None)
Quarter: 2008Q2

REPORT INFORMATION
  Report Type: 
  Country: None (occurrence: None)
  Receive Date: 20080506
  Receipt Date: 20080424
  Transmission Date: 20081010
  Serious: Yes (Other)
  Sender: FDA-Public Use
  Company Number: BR-PFIZER INC-2008037842

PATIENT
  Age: 68 Year
  Sex: Female

DRUGS (2)
  1. GABAPENTIN [Suspect]
     Indication: BACK PAIN
  2. GABAPENTIN [Suspect]
     Indication: PARAESTHESIA

REACTIONS (2)
  - CEREBRAL MICROANGIOPATHY [None]
  - CHOREA [None]
